FAERS Safety Report 4929541-5 (Version None)
Quarter: 2006Q1

REPORT INFORMATION
  Report Type: 
  Country: None (occurrence: None)
  Receive Date: 20060224
  Receipt Date: 20060208
  Transmission Date: 20060701
  Serious: Yes (Hospitalization)
  Sender: FDA-Public Use
  Company Number: 222340

PATIENT
  Age: 53 Year
  Sex: Female
  Weight: 97 kg

DRUGS (4)
  1. AVASTIN [Suspect]
     Indication: COLON CANCER
     Dosage: 485 MG, Q2W, INTRAVENOUS
     Route: 042
     Dates: start: 20060123
  2. OXALIPLATIN (OXALIPLATIN) [Suspect]
     Indication: COLON CANCER
     Dosage: 180 MG, Q2W, INTRAVENOUS
     Route: 042
     Dates: start: 20060123
  3. LEUCOVORIN CALCIUM [Suspect]
     Indication: COLON CANCER
     Dosage: 420 MG, Q2W, INTRAVENOUS
     Route: 042
     Dates: start: 20060123, end: 20060208
  4. FLUOROURACIL [Suspect]
     Indication: COLON CANCER
     Dosage: 840 MG, 4/MONTH, INTRAVENOUS
     Route: 042
     Dates: start: 20060123, end: 20060207

REACTIONS (4)
  - BLOOD PRESSURE DIASTOLIC DECREASED [None]
  - CHILLS [None]
  - PYREXIA [None]
  - RASH ERYTHEMATOUS [None]
